FAERS Safety Report 4267165-6 (Version None)
Quarter: 2004Q1

REPORT INFORMATION
  Report Type: 
  Country: None (occurrence: None)
  Receive Date: 20040107
  Receipt Date: 20031229
  Transmission Date: 20041129
  Serious: Yes (Hospitalization)
  Sender: FDA-Public Use
  Company Number: US-JNJFOC-20031205509

PATIENT
  Age: 66 Year
  Sex: Female

DRUGS (7)
  1. INFLIXIMAB (INFLIXIMAB, RECOMBINANT) LYOPHILIZED POWDER [Suspect]
     Indication: RHEUMATOID ARTHRITIS
     Dosage: 500 MG, 1 IN 5 WEEK, INTRAVENOUS
     Route: 042
     Dates: start: 20000810
  2. PREDNISONE [Concomitant]
  3. METHOTREXATE [Concomitant]
  4. LIPITOR [Concomitant]
  5. CELEBREX [Concomitant]
  6. ACTONEL [Concomitant]
  7. FOLIC ACID [Concomitant]

REACTIONS (3)
  - ABDOMINAL ADHESIONS [None]
  - DIVERTICULITIS [None]
  - URINE ANALYSIS ABNORMAL [None]
